FAERS Safety Report 15103989 (Version 3)
Quarter: 2024Q3

REPORT INFORMATION
  Report Type: Spontaneous
  Country: AT (occurrence: AT)
  Receive Date: 20180703
  Receipt Date: 20240701
  Transmission Date: 20241016
  Serious: Yes (Other)
  Sender: OTSUKA
  Company Number: AT-OTSUKA-2018_018284

PATIENT
  Age: 27 Year
  Sex: Female
  Weight: 65 kg

DRUGS (41)
  1. ABILIFY [Suspect]
     Active Substance: ARIPIPRAZOLE
     Indication: Product used for unknown indication
     Dosage: 5 MG, QD
     Route: 065
     Dates: start: 20161214, end: 20161221
  2. LAMICTAL [Suspect]
     Active Substance: LAMOTRIGINE
     Indication: Product used for unknown indication
     Dosage: 75 MG
     Route: 065
     Dates: start: 20161220, end: 20161226
  3. LAMICTAL [Suspect]
     Active Substance: LAMOTRIGINE
     Dosage: 50 MG
     Route: 065
     Dates: start: 20161213, end: 20161219
  4. LAMICTAL [Suspect]
     Active Substance: LAMOTRIGINE
     Dosage: 25 MG
     Route: 065
     Dates: start: 201611, end: 20161212
  5. LAMICTAL [Suspect]
     Active Substance: LAMOTRIGINE
     Dosage: 100 MG
     Route: 065
     Dates: start: 20161227, end: 20170102
  6. LAMICTAL [Suspect]
     Active Substance: LAMOTRIGINE
     Dosage: 125 MG
     Route: 065
     Dates: start: 20170103, end: 20170108
  7. LAMICTAL [Suspect]
     Active Substance: LAMOTRIGINE
     Dosage: 225 MG
     Route: 065
     Dates: start: 20170109, end: 20170109
  8. LAMICTAL [Suspect]
     Active Substance: LAMOTRIGINE
     Dosage: 150 MG
     Route: 065
     Dates: start: 20170110, end: 20170116
  9. LAMICTAL [Suspect]
     Active Substance: LAMOTRIGINE
     Dosage: 175 MG
     Route: 065
     Dates: start: 20170117, end: 20170123
  10. LAMICTAL [Suspect]
     Active Substance: LAMOTRIGINE
     Dosage: 200 MG
     Route: 065
     Dates: start: 20170124
  11. ASPIRIN [Suspect]
     Active Substance: ASPIRIN
     Indication: Product used for unknown indication
     Dosage: 80 MG
     Route: 065
     Dates: start: 20161220, end: 20161226
  12. ASPIRIN [Suspect]
     Active Substance: ASPIRIN
     Dosage: 80 MG
     Route: 065
     Dates: start: 20161215, end: 20161215
  13. ASPIRIN [Suspect]
     Active Substance: ASPIRIN
     Dosage: 40 MG
     Route: 065
     Dates: start: 20161216, end: 20161219
  14. WELLBUTRIN [Suspect]
     Active Substance: BUPROPION HYDROCHLORIDE
     Indication: Product used for unknown indication
     Dosage: 150 MG
     Route: 065
     Dates: start: 20161207, end: 20161215
  15. WELLBUTRIN [Suspect]
     Active Substance: BUPROPION HYDROCHLORIDE
     Dosage: 150 MG
     Route: 065
     Dates: start: 20161227, end: 20170110
  16. WELLBUTRIN [Suspect]
     Active Substance: BUPROPION HYDROCHLORIDE
     Dosage: 300 MG
     Route: 065
     Dates: start: 20170111, end: 20170117
  17. WELLBUTRIN [Suspect]
     Active Substance: BUPROPION HYDROCHLORIDE
     Dosage: 150 MG
     Route: 065
     Dates: start: 20170118
  18. ZOLPIDEM TARTRATE [Suspect]
     Active Substance: ZOLPIDEM TARTRATE
     Indication: Product used for unknown indication
     Dosage: 10 MG
     Route: 065
     Dates: start: 20161214, end: 20161214
  19. ZOLPIDEM TARTRATE [Suspect]
     Active Substance: ZOLPIDEM TARTRATE
     Dosage: 5 MG
     Route: 065
     Dates: start: 20161212, end: 20161213
  20. ZOLPIDEM TARTRATE [Suspect]
     Active Substance: ZOLPIDEM TARTRATE
     Dosage: 5 MG
     Route: 065
     Dates: start: 20170113, end: 20170123
  21. VENLAFAXINE HYDROCHLORIDE [Suspect]
     Active Substance: VENLAFAXINE HYDROCHLORIDE
     Indication: Product used for unknown indication
     Dosage: 75 MG
     Route: 065
     Dates: start: 20161216, end: 20161218
  22. OXAZEPAM [Suspect]
     Active Substance: OXAZEPAM
     Indication: Product used for unknown indication
     Dosage: 15 MG
     Route: 065
     Dates: start: 20161224, end: 20161224
  23. OXAZEPAM [Suspect]
     Active Substance: OXAZEPAM
     Dosage: 15 MG
     Route: 065
     Dates: start: 20161208, end: 20161208
  24. OXAZEPAM [Suspect]
     Active Substance: OXAZEPAM
     Dosage: 30 MG
     Route: 065
     Dates: start: 20161221, end: 20161223
  25. RETINOL [Suspect]
     Active Substance: RETINOL
     Indication: Product used for unknown indication
     Dosage: 30 MG
     Route: 065
  26. RETINOL [Suspect]
     Active Substance: RETINOL
     Dosage: 30 GTT
     Route: 065
     Dates: start: 2016
  27. INDERAL [Suspect]
     Active Substance: PROPRANOLOL HYDROCHLORIDE
     Indication: Product used for unknown indication
     Dosage: 10 MG
     Route: 065
     Dates: start: 20161220, end: 20161226
  28. INDERAL [Suspect]
     Active Substance: PROPRANOLOL HYDROCHLORIDE
     Dosage: 10-20 MG
     Route: 065
     Dates: start: 20161208, end: 20161213
  29. INDERAL [Suspect]
     Active Substance: PROPRANOLOL HYDROCHLORIDE
     Dosage: 10 MG
     Route: 065
     Dates: start: 20161215, end: 20161217
  30. INDERAL [Suspect]
     Active Substance: PROPRANOLOL HYDROCHLORIDE
     Dosage: 10 MG
     Route: 065
     Dates: start: 20161231, end: 20161231
  31. INDERAL [Suspect]
     Active Substance: PROPRANOLOL HYDROCHLORIDE
     Dosage: 10 MG
     Route: 065
     Dates: start: 20170111, end: 20170113
  32. KALIORAL [Concomitant]
     Indication: Product used for unknown indication
     Dosage: 1 MG
     Route: 065
     Dates: start: 20161206, end: 20161209
  33. CITALOPRAM [Concomitant]
     Active Substance: CITALOPRAM\CITALOPRAM HYDROBROMIDE
     Indication: Product used for unknown indication
     Dosage: 10 MG
     Route: 065
     Dates: start: 20161223, end: 20161224
  34. CITALOPRAM [Concomitant]
     Active Substance: CITALOPRAM\CITALOPRAM HYDROBROMIDE
     Dosage: 20 MG
     Route: 065
     Dates: start: 20161225, end: 20161225
  35. LORAZEPAM [Concomitant]
     Active Substance: LORAZEPAM
     Indication: Product used for unknown indication
     Dosage: 1 MG
     Route: 065
     Dates: start: 20161223, end: 20161224
  36. LORAZEPAM [Concomitant]
     Active Substance: LORAZEPAM
     Dosage: 0.5 MG
     Route: 065
     Dates: start: 20161227, end: 20161227
  37. LORAZEPAM [Concomitant]
     Active Substance: LORAZEPAM
     Dosage: 1 MG
     Route: 065
     Dates: start: 20161226, end: 20161226
  38. LORAZEPAM [Concomitant]
     Active Substance: LORAZEPAM
     Dosage: 1.5 MG
     Route: 065
     Dates: start: 20161225, end: 20161225
  39. DOXAZOSIN [Concomitant]
     Active Substance: DOXAZOSIN MESYLATE
     Indication: Product used for unknown indication
     Dosage: 2 MG
     Route: 065
     Dates: start: 20161223, end: 20161224
  40. DOXAZOSIN [Concomitant]
     Active Substance: DOXAZOSIN MESYLATE
     Dosage: 1 MG
     Route: 065
     Dates: start: 20170103, end: 20170106
  41. DOXAZOSIN [Concomitant]
     Active Substance: DOXAZOSIN MESYLATE
     Dosage: 2 MG
     Route: 065
     Dates: start: 20170107, end: 20170108

REACTIONS (6)
  - Galactorrhoea [Recovering/Resolving]
  - Nightmare [Unknown]
  - Visual impairment [Recovered/Resolved]
  - Vision blurred [Unknown]
  - Urinary retention [Recovered/Resolved]
  - Underdose [Unknown]

NARRATIVE: CASE EVENT DATE: 20161215
